FAERS Safety Report 11700150 (Version 3)
Quarter: 2015Q4

REPORT INFORMATION
  Report Type: Spontaneous
  Country: IT (occurrence: IT)
  Receive Date: 20151105
  Receipt Date: 20151112
  Transmission Date: 20160304
  Serious: Yes (Hospitalization)
  Sender: FDA-Public Use
  Company Number: IT-IPSEN BIOPHARMACEUTICALS, INC.-2015-8213

PATIENT
  Age: 53 Year
  Sex: Male

DRUGS (4)
  1. DEURSIL [Concomitant]
     Active Substance: URSODIOL
     Indication: PRODUCT USE ISSUE
     Dosage: NOT REPORTED
     Route: 048
  2. NEXIUM [Concomitant]
     Active Substance: ESOMEPRAZOLE MAGNESIUM
     Indication: GASTROINTESTINAL ULCER
     Dosage: NOT REPORTED
     Route: 048
  3. IPSTYL [Suspect]
     Active Substance: LANREOTIDE ACETATE
     Indication: GASTROINTESTINAL HAEMORRHAGE
     Dosage: 30 MG
     Route: 058
     Dates: start: 20120101, end: 20150805
  4. IPSTYL [Suspect]
     Active Substance: LANREOTIDE ACETATE
     Indication: PRODUCT USE ISSUE

REACTIONS (5)
  - Coagulation factor deficiency [Recovered/Resolved with Sequelae]
  - Splenomegaly [Unknown]
  - Pancytopenia [Unknown]
  - Inappropriate schedule of drug administration [Unknown]
  - International normalised ratio increased [Unknown]

NARRATIVE: CASE EVENT DATE: 20150805
